FAERS Safety Report 24963068 (Version 1)
Quarter: 2025Q1

REPORT INFORMATION
  Report Type: Spontaneous
  Country: ES (occurrence: ES)
  Receive Date: 20250213
  Receipt Date: 20250213
  Transmission Date: 20250409
  Serious: Yes (Other)
  Sender: ALEXION PHARMACEUTICALS
  Company Number: None

PATIENT
  Age: 59 Year

DRUGS (5)
  1. CALQUENCE [Suspect]
     Active Substance: ACALABRUTINIB
     Indication: B-cell small lymphocytic lymphoma
     Dosage: 100 MILLIGRAM, Q12H
  2. IMBRUVICA [Suspect]
     Active Substance: IBRUTINIB
     Indication: B-cell small lymphocytic lymphoma
     Dosage: 3 TABLETS OF 140MG
  3. IMBRUVICA [Suspect]
     Active Substance: IBRUTINIB
     Dosage: 3 TABLETS OF 140MG
  4. IMBRUVICA [Suspect]
     Active Substance: IBRUTINIB
     Dosage: 3 TABLETS OF 140MG
  5. IMBRUVICA [Suspect]
     Active Substance: IBRUTINIB
     Dosage: 1 TABLET OF 420 MG

REACTIONS (1)
  - Cough [Recovered/Resolved]
